FAERS Safety Report 15276030 (Version 1)
Quarter: 2018Q3

REPORT INFORMATION
  Report Type: Spontaneous
  Country: US (occurrence: US)
  Receive Date: 20180814
  Receipt Date: 20180814
  Transmission Date: 20181010
  Serious: No
  Sender: FDA-Public Use
  Company Number: US-MYLANLABS-2018M1059860

PATIENT
  Sex: Female
  Weight: 74.83 kg

DRUGS (1)
  1. ATORVASTATIN CALCIUM TABLETS [Suspect]
     Active Substance: ATORVASTATIN CALCIUM
     Indication: BLOOD CHOLESTEROL
     Dosage: 1 DF, QD
     Route: 048

REACTIONS (2)
  - Pain [Recovered/Resolved]
  - Influenza like illness [Recovered/Resolved]
